FAERS Safety Report 20581377 (Version 1)
Quarter: 2022Q1

REPORT INFORMATION
  Report Type: Spontaneous
  Country: IT (occurrence: IT)
  Receive Date: 20220311
  Receipt Date: 20220311
  Transmission Date: 20220424
  Serious: Yes (Other)
  Sender: FDA-Public Use
  Company Number: None

PATIENT
  Age: 54 Year
  Sex: Female
  Weight: 60 kg

DRUGS (5)
  1. CARBOPLATIN [Suspect]
     Active Substance: CARBOPLATIN
     Indication: Ovarian cancer
     Dosage: 540MG
     Route: 042
     Dates: start: 20190201, end: 20190201
  2. GASTROLOC [Concomitant]
     Dosage: 20MG
     Route: 048
  3. LOBIDIUR [Concomitant]
     Active Substance: HYDROCHLOROTHIAZIDE\NEBIVOLOL HYDROCHLORIDE
     Dosage: 5 MG
     Route: 048
  4. PACLITAXEL [Concomitant]
     Active Substance: PACLITAXEL
     Indication: Ovarian cancer
     Dosage: 175MG
     Route: 042
     Dates: start: 20190201, end: 20190201
  5. ESTAZOLAM [Concomitant]
     Active Substance: ESTAZOLAM
     Dosage: 1MG
     Route: 048

REACTIONS (3)
  - Infusion related reaction [Recovered/Resolved]
  - Skin oedema [Recovered/Resolved]
  - Hypersensitivity [Recovered/Resolved]

NARRATIVE: CASE EVENT DATE: 20190201
